FAERS Safety Report 4727879-8 (Version None)
Quarter: 2005Q3

REPORT INFORMATION
  Report Type: 
  Country: None (occurrence: None)
  Receive Date: 20050727
  Receipt Date: 20050714
  Transmission Date: 20060218
  Serious: Yes (Other)
  Sender: FDA-Public Use
  Company Number: 2005070247

PATIENT
  Age: 60 Year
  Sex: Female
  Weight: 65 kg

DRUGS (5)
  1. CELEBREX [Suspect]
     Indication: INFLAMMATION
     Dosage: 200 MG (1 D), ORAL
     Route: 048
     Dates: start: 20050408, end: 20050420
  2. CELEBREX [Suspect]
     Indication: PAIN
     Dosage: 200 MG (1 D), ORAL
     Route: 048
     Dates: start: 20050408, end: 20050420
  3. CELEBREX [Suspect]
     Indication: SHOULDER PAIN
     Dosage: 200 MG (1 D), ORAL
     Route: 048
     Dates: start: 20050408, end: 20050420
  4. BEXTRA [Concomitant]
  5. LIVIELLA (TIBOLONE) [Concomitant]

REACTIONS (2)
  - HEPATOCELLULAR DAMAGE [None]
  - PANCREATIC INSUFFICIENCY [None]
